FAERS Safety Report 6893685-1 (Version None)
Quarter: 2010Q3

REPORT INFORMATION
  Report Type: 
  Country: None (occurrence: None)
  Receive Date: 20100731
  Receipt Date: 20100219
  Transmission Date: 20110219
  Serious: Yes (Other)
  Sender: FDA-Public Use
  Company Number: US-PFIZER INC-2008035990

PATIENT
  Sex: Female
  Weight: 63.5 kg

DRUGS (7)
  1. LIPITOR [Suspect]
     Indication: BLOOD CHOLESTEROL INCREASED
     Route: 048
     Dates: start: 20070101, end: 20071001
  2. NIACIN [Suspect]
     Indication: BLOOD CHOLESTEROL INCREASED
     Dates: start: 20080301, end: 20080401
  3. BUTALBITAL ACETAMINOPHEN AND CAFFEINE [Concomitant]
     Indication: MIGRAINE
     Dosage: UNK
  4. DEPAKOTE [Concomitant]
     Indication: MIGRAINE
  5. ACIPHEX [Concomitant]
  6. AMBIEN [Concomitant]
  7. LEVOTHYROXINE [Concomitant]
     Indication: HYPOTHYROIDISM
     Dosage: 150 UG, 1X/DAY
     Route: 048

REACTIONS (11)
  - ADVERSE DRUG REACTION [None]
  - AGEUSIA [None]
  - BLOOD CHOLESTEROL INCREASED [None]
  - DRY EYE [None]
  - INSOMNIA [None]
  - MOBILITY DECREASED [None]
  - MYOSITIS [None]
  - NEURALGIA [None]
  - PAIN IN EXTREMITY [None]
  - SWELLING FACE [None]
  - WEIGHT INCREASED [None]
